FAERS Safety Report 5717327-3 (Version None)
Quarter: 2008Q2

REPORT INFORMATION
  Report Type: 
  Country: None (occurrence: None)
  Receive Date: 20080424
  Receipt Date: 20080424
  Transmission Date: 20081010
  Serious: No
  Sender: FDA-Public Use
  Company Number: None

PATIENT
  Age: 42 Year
  Sex: Female
  Weight: 68.0396 kg

DRUGS (1)
  1. LEVAQUIN [Suspect]
     Indication: RESPIRATORY TRACT INFECTION
     Dosage: 10 DAYS PO
     Route: 048
     Dates: start: 20080206, end: 20080216

REACTIONS (4)
  - ARTHRALGIA [None]
  - CHEST PAIN [None]
  - NECK PAIN [None]
  - PAIN IN EXTREMITY [None]
